FAERS Safety Report 12797943 (Version 1)
Quarter: 2016Q3

REPORT INFORMATION
  Report Type: Report from Study
  Country: JP (occurrence: JP)
  Receive Date: 20160930
  Receipt Date: 20160930
  Transmission Date: 20161109
  Serious: Yes (Other)
  Sender: FDA-Public Use
  Company Number: JP-ROCHE-1818388

PATIENT
  Age: 58 Year
  Sex: Male

DRUGS (18)
  1. PREDNISOLONE. [Concomitant]
     Active Substance: PREDNISOLONE
     Indication: NEPHROTIC SYNDROME
     Dosage: 5-20 MG
     Route: 048
  2. MUCOSTA [Concomitant]
     Active Substance: REBAMIPIDE
     Indication: GASTRODUODENAL ULCER
     Route: 048
  3. BAKTAR [Concomitant]
     Active Substance: SULFAMETHOXAZOLE\TRIMETHOPRIM
     Indication: PNEUMOCYSTIS JIROVECII PNEUMONIA
     Dosage: EVERYB OTHER DAY
     Route: 048
  4. FUNGIZONE [Concomitant]
     Active Substance: AMPHOTERICIN B
     Indication: CANDIDA INFECTION
     Route: 048
  5. RITUXIMAB [Suspect]
     Active Substance: RITUXIMAB
     Indication: NEPHROTIC SYNDROME
     Dosage: ITIAL INFUSION RATE OF 50 MG/H AND THE MAXIMUM RATE OF 300 MG/H
     Route: 042
     Dates: start: 20150616, end: 20160401
  6. RITUXIMAB [Suspect]
     Active Substance: RITUXIMAB
     Dosage: ITIAL INFUSION RATE OF 50 MG/H AND THE MAXIMUM RATE OF 300 MG/H
     Route: 042
     Dates: start: 20160401
  7. METHYLPREDNISOLONE SODIUM SUCCINATE. [Concomitant]
     Active Substance: METHYLPREDNISOLONE SODIUM SUCCINATE
     Dosage: PREMEDICATION BEFORE RITUXIMAB INFUSION
     Route: 042
     Dates: start: 20150616, end: 20151023
  8. CALONAL [Concomitant]
     Active Substance: ACETAMINOPHEN
     Dosage: PREMEDICATION BEFORE RITUXIMAB INFUSION
     Route: 048
     Dates: start: 20150616, end: 20160401
  9. AVAPRO [Concomitant]
     Active Substance: IRBESARTAN
     Indication: HYPERTENSION
     Route: 048
  10. TAKEPRON [Concomitant]
     Active Substance: LANSOPRAZOLE
     Indication: GASTRODUODENAL ULCER
     Route: 048
  11. RITUXIMAB [Suspect]
     Active Substance: RITUXIMAB
     Dosage: ITIAL INFUSION RATE OF 50 MG/H AND THE MAXIMUM RATE OF 300 MG/H
     Route: 042
     Dates: start: 20151023
  12. SOLU-MEDROL [Concomitant]
     Active Substance: METHYLPREDNISOLONE SODIUM SUCCINATE
     Dosage: PREMEDICATION BEFORE RITUXIMAB INFUSION
     Route: 042
     Dates: start: 20160401, end: 20160401
  13. NEORAL [Concomitant]
     Active Substance: CYCLOSPORINE
     Indication: NEPHROTIC SYNDROME
     Route: 048
  14. ATARAX [Concomitant]
     Active Substance: HYDROXYZINE\HYDROXYZINE HYDROCHLORIDE
     Dosage: PREMEDICATION BEFORE RITUXIMAB INFUSION
     Route: 048
     Dates: start: 20150616, end: 20160401
  15. ALOSITOL [Concomitant]
     Active Substance: ALLOPURINOL
     Indication: HYPERURICAEMIA
     Route: 048
  16. PREDNISOLONE. [Concomitant]
     Active Substance: PREDNISOLONE
     Dosage: 8-10 MG
     Route: 048
  17. NORVASC [Concomitant]
     Active Substance: AMLODIPINE BESYLATE
     Indication: HYPERTENSION
     Route: 048
  18. FOSAMAC [Concomitant]
     Active Substance: ALENDRONATE SODIUM
     Indication: OSTEOPOROSIS
     Route: 048

REACTIONS (1)
  - Cognitive disorder [Not Recovered/Not Resolved]

NARRATIVE: CASE EVENT DATE: 20160222
